FAERS Safety Report 17242783 (Version 5)
Quarter: 2020Q1

REPORT INFORMATION
  Report Type: Report from Study
  Country: US (occurrence: US)
  Receive Date: 20200107
  Receipt Date: 20200224
  Transmission Date: 20200409
  Serious: Yes (Other)
  Sender: FDA-Public Use
  Company Number: US-PFIZER INC-2020004299

PATIENT
  Age: 58 Year
  Sex: Female

DRUGS (1)
  1. IBRANCE [Suspect]
     Active Substance: PALBOCICLIB
     Indication: BREAST CANCER
     Dosage: 125 MG, CYCLIC (DAILY FOR 21 DAYS OF 28 DAY CYCLE/ 21 DAYS ON, 7 OFF)
     Route: 048
     Dates: start: 20191206

REACTIONS (12)
  - Fatigue [Not Recovered/Not Resolved]
  - Neuropathy peripheral [Not Recovered/Not Resolved]
  - Eye discharge [Unknown]
  - Blood bilirubin increased [Unknown]
  - Hypersensitivity [Unknown]
  - Blood pressure fluctuation [Unknown]
  - White blood cell count decreased [Unknown]
  - Dysgeusia [Unknown]
  - Bone marrow failure [Unknown]
  - Stress [Unknown]
  - Cough [Unknown]
  - Hepatic enzyme increased [Unknown]

NARRATIVE: CASE EVENT DATE: 2019
